FAERS Safety Report 9316382 (Version 1)
Quarter: 2013Q2

REPORT INFORMATION
  Report Type: Spontaneous
  Country: DE (occurrence: DE)
  Receive Date: 20130530
  Receipt Date: 20130530
  Transmission Date: 20140414
  Serious: Yes (Death, Other)
  Sender: FDA-Public Use
  Company Number: DE-JNJFOC-20130513886

PATIENT
  Sex: 0

DRUGS (1)
  1. FENTANYL [Suspect]
     Indication: PRODUCT USED FOR UNKNOWN INDICATION
     Route: 065

REACTIONS (8)
  - Drug abuse [Fatal]
  - Respiratory arrest [Unknown]
  - Circulatory collapse [Unknown]
  - Intentional drug misuse [Unknown]
  - Overdose [Unknown]
  - Intentional drug misuse [Unknown]
  - Drug diversion [Unknown]
  - Intentional drug misuse [Unknown]
